FAERS Safety Report 6844710-5 (Version None)
Quarter: 2010Q3

REPORT INFORMATION
  Report Type: 
  Country: None (occurrence: None)
  Receive Date: 20100715
  Receipt Date: 20100708
  Transmission Date: 20110219
  Serious: Yes (Other)
  Sender: FDA-Public Use
  Company Number: FR-BAYER-201032288GPV

PATIENT
  Age: 63 Year
  Sex: Female

DRUGS (1)
  1. BETAFERON [Suspect]
     Indication: MULTIPLE SCLEROSIS
     Route: 058
     Dates: start: 20070101

REACTIONS (2)
  - RHEUMATIC FEVER [None]
  - SYSTEMIC LUPUS ERYTHEMATOSUS [None]
